FAERS Safety Report 4351091-8 (Version None)
Quarter: 2004Q2

REPORT INFORMATION
  Report Type: 
  Country: None (occurrence: None)
  Receive Date: 20040428
  Receipt Date: 20030613
  Transmission Date: 20050107
  Serious: Yes (Other)
  Sender: FDA-Public Use
  Company Number: US-JNJFOC-20030601576

PATIENT
  Age: 33 Year
  Sex: Female
  Weight: 104.3273 kg

DRUGS (2)
  1. ULTRAM [Suspect]
     Indication: GASTROINTESTINAL PAIN
     Dosage: 50 MG, ORAL
     Route: 048
     Dates: start: 20020601, end: 20030101
  2. WELLBUTRIN SR [Concomitant]

REACTIONS (3)
  - CONVULSION [None]
  - DRUG ABUSER [None]
  - DRUG WITHDRAWAL SYNDROME [None]
